FAERS Safety Report 8075460-8 (Version None)
Quarter: 2012Q1

REPORT INFORMATION
  Report Type: 
  Country: None (occurrence: None)
  Receive Date: 20120127
  Receipt Date: 20120117
  Transmission Date: 20120608
  Serious: Yes (Death)
  Sender: FDA-Public Use
  Company Number: AU-UCBSA-050102

PATIENT
  Age: 54 Year
  Sex: Male
  Weight: 70 kg

DRUGS (6)
  1. THIAMINE HCL [Concomitant]
  2. RANITIDINE [Concomitant]
  3. KEPPRA [Suspect]
     Dosage: DAILY DOSE: 2 G
     Route: 048
     Dates: start: 20101007, end: 20101014
  4. METOCLOPRAMIDE HCL [Concomitant]
  5. SERTRALINE HYDROCHLORIDE [Concomitant]
  6. PHYTONADIONE [Concomitant]

REACTIONS (2)
  - DEATH [None]
  - ALANINE AMINOTRANSFERASE INCREASED [None]
